FAERS Safety Report 9796455 (Version 5)
Quarter: 2014Q2

REPORT INFORMATION
  Report Type: Spontaneous
  Country: US (occurrence: US)
  Receive Date: 20140103
  Receipt Date: 20140523
  Transmission Date: 20141212
  Serious: Yes (Other)
  Sender: FDA-Public Use
  Company Number: US-BAYER-2014-000735

PATIENT
  Age: 63 Year
  Sex: Female
  Weight: 66.67 kg

DRUGS (25)
  1. BAYER ASPIRIN REGIMEN ADULT LOW STRENGTH [Suspect]
     Indication: COAGULOPATHY
     Dosage: UNK
  2. XARELTO [Interacting]
     Indication: COAGULOPATHY
     Dosage: UNK
  3. PLAVIX [Interacting]
     Indication: COAGULOPATHY
  4. SUTENT [Suspect]
     Dosage: 25 MG, UNK
  5. SUTENT [Suspect]
     Dosage: 50 MG, UNK
  6. PROTONIX [Concomitant]
  7. TAGAMET [Concomitant]
  8. METOPROLOL [Concomitant]
  9. RECLAST [Concomitant]
     Dosage: UNK UNK, Q1MON
  10. ALBUTEROL [Concomitant]
  11. REQUIP [Concomitant]
  12. TEMAZEPAM [Concomitant]
  13. OXYGEN [Concomitant]
     Dosage: CONTINUOUS AT NIGHT
  14. SPIRIVA [Concomitant]
  15. VENTOLIN [Concomitant]
  16. NYSTATIN [Concomitant]
     Dosage: SWISH AND SWALLOW
  17. DULCOLAX [BISACODYL] [Concomitant]
  18. OXYCONTIN [Concomitant]
  19. VITAMIN D3 [Concomitant]
  20. PRIMIDONE [Concomitant]
  21. ROXICODONE [Concomitant]
  22. LIPITOR [Concomitant]
  23. LASIX [Concomitant]
     Dosage: UNK UNK, PRN
  24. DOXEPIN [Concomitant]
  25. SYNTHROID [Concomitant]

REACTIONS (29)
  - Arrhythmia [None]
  - Skin haemorrhage [None]
  - Wound infection fungal [None]
  - Haemorrhagic diathesis [None]
  - Diarrhoea [Not Recovered/Not Resolved]
  - Flatulence [None]
  - Weight decreased [None]
  - Blister [Recovered/Resolved]
  - Skin exfoliation [Recovered/Resolved]
  - Onychalgia [None]
  - Swelling [Recovered/Resolved]
  - Oedema [Recovered/Resolved]
  - Off label use [None]
  - Labelled drug-drug interaction medication error [None]
  - Nausea [None]
  - Vomiting [None]
  - Weight fluctuation [None]
  - Limb injury [None]
  - Limb injury [None]
  - Skin ulcer [None]
  - Post-traumatic pain [None]
  - Local swelling [None]
  - Weight increased [None]
  - Fluid retention [None]
  - Muscle spasms [None]
  - Fatigue [Not Recovered/Not Resolved]
  - Alopecia [None]
  - Thyroid gland scan abnormal [None]
  - Gait disturbance [None]
